FAERS Safety Report 9492518 (Version 2)
Quarter: 2013Q3

REPORT INFORMATION
  Report Type: Report from Study
  Country: US (occurrence: US)
  Receive Date: 20130830
  Receipt Date: 20130830
  Transmission Date: 20140515
  Serious: Yes (Other)
  Sender: FDA-Public Use
  Company Number: US-ROCHE-1266854

PATIENT
  Sex: Female

DRUGS (9)
  1. LUCENTIS [Suspect]
     Indication: DIABETIC RETINOPATHY
     Dosage: BOTH EYES
     Route: 065
     Dates: start: 20130723
  2. BRIMONIDINE [Concomitant]
     Dosage: 1 DROP BID LEFT EYE
     Route: 047
  3. TIMOLOL MALEATE [Concomitant]
     Dosage: BID BOTH EYES
     Route: 047
  4. LATANOPROST [Concomitant]
     Dosage: 1 DROP AT BEDTIME LEFT EYE
     Route: 065
  5. METOPROLOL TARTRATE [Concomitant]
     Dosage: BID WITH MEALS
     Route: 048
  6. METFORMIN [Concomitant]
     Dosage: 1 TAB WITH EVENING MEAL
     Route: 065
  7. ASPIRIN [Concomitant]
     Route: 065
  8. GLIPIZIDE [Concomitant]
     Route: 065
  9. LISINOPRIL [Concomitant]
     Route: 065

REACTIONS (10)
  - Glaucoma [Unknown]
  - Visual acuity reduced [Unknown]
  - Photophobia [Unknown]
  - Pain [Unknown]
  - Visual impairment [Unknown]
  - Vitreous floaters [Unknown]
  - Night blindness [Unknown]
  - Foreign body sensation in eyes [Unknown]
  - Vision blurred [Unknown]
  - Glare [Unknown]
